FAERS Safety Report 6579446-1 (Version None)
Quarter: 2010Q1

REPORT INFORMATION
  Report Type: 
  Country: None (occurrence: None)
  Receive Date: 20100212
  Receipt Date: 20100112
  Transmission Date: 20100710
  Serious: No
  Sender: FDA-Public Use
  Company Number: US-BAYER-201010754BCC

PATIENT
  Age: 75 Year
  Sex: Male
  Weight: 93 kg

DRUGS (10)
  1. ALEVE (CAPLET) [Suspect]
     Indication: PAIN IN EXTREMITY
     Dosage: UNIT DOSE: 220 MG
     Route: 048
     Dates: start: 20100105
  2. ROSUVASTATIN CALCIUM [Concomitant]
     Dosage: TOTAL DAILY DOSE: 20 MG  UNIT DOSE: 40 MG
     Route: 065
  3. AMLODIPINE BESYLATE [Concomitant]
     Route: 065
  4. COUGH SYRUP COUGH DM [Concomitant]
     Route: 065
  5. VITAMIN C [Concomitant]
     Route: 065
  6. SHAKLEE MULTI VITAMIN [Concomitant]
     Route: 065
  7. SHAKLEE LAXATIVE [Concomitant]
     Route: 065
  8. AMLACTINE ALPHA HYDROXY CREAM [Concomitant]
     Indication: PRURITUS
     Route: 065
  9. PRIMCINOLONE ACETODE [Concomitant]
     Indication: PRURITUS
     Route: 065
  10. DESONIDE [Concomitant]
     Route: 065

REACTIONS (1)
  - RASH PAPULAR [None]
